FAERS Safety Report 8506372-0 (Version None)
Quarter: 2012Q3

REPORT INFORMATION
  Report Type: 
  Country: None (occurrence: None)
  Receive Date: 20120712
  Receipt Date: 20120703
  Transmission Date: 20120928
  Serious: Yes (Hospitalization, Other)
  Sender: FDA-Public Use
  Company Number: US-JNJFOC-20120605641

PATIENT
  Sex: Male
  Weight: 73.03 kg

DRUGS (26)
  1. ASPIRIN [Concomitant]
     Indication: ATRIAL FIBRILLATION
     Route: 048
  2. SOTALOL HCL [Concomitant]
     Route: 048
  3. POTASSIUM GLUCONATE TAB [Concomitant]
  4. ASPIRIN [Concomitant]
     Route: 048
     Dates: end: 20120408
  5. ASPIRIN [Concomitant]
     Route: 048
     Dates: end: 20120408
  6. E VITAMIN [Concomitant]
  7. VITAMIN D [Concomitant]
  8. ANTIVERT [Concomitant]
  9. VITAMIN D [Concomitant]
  10. LOVAZA [Concomitant]
  11. AMLODIPINE [Concomitant]
     Route: 048
  12. XARELTO [Suspect]
     Route: 048
     Dates: start: 20120404, end: 20120406
  13. ASCORBIC ACID [Concomitant]
  14. SLO-MAG [Concomitant]
     Dosage: 238MG CALCIUM, 143MG MAGNESIUM AND 405MG CHLORIDE
  15. ZETIA [Concomitant]
     Route: 048
  16. XARELTO [Suspect]
     Indication: ATRIAL FIBRILLATION
     Dosage: FOR 3 TO 4 DAYS
     Route: 048
  17. DIOVAN [Concomitant]
     Route: 048
  18. ASPIRIN [Concomitant]
     Indication: CORONARY ARTERY DISEASE
     Route: 048
  19. CRESTOR [Concomitant]
     Route: 048
  20. PROVIGIL [Concomitant]
     Route: 048
  21. VITAMIN B-12 [Concomitant]
     Dosage: MCG SR
  22. QNASL [Concomitant]
  23. COREG [Concomitant]
     Route: 048
  24. LOSARTAN POTASSIUM [Concomitant]
  25. CALCIUM [Concomitant]
  26. LUTEIN [Concomitant]
     Route: 048

REACTIONS (6)
  - GASTRIC ULCER [None]
  - HYPOTENSION [None]
  - HAEMATURIA [None]
  - NEPHROLITHIASIS [None]
  - ANAEMIA [None]
  - UPPER GASTROINTESTINAL HAEMORRHAGE [None]
